FAERS Safety Report 6086870-2 (Version None)
Quarter: 2009Q1

REPORT INFORMATION
  Report Type: 
  Country: None (occurrence: None)
  Receive Date: 20090223
  Receipt Date: 20090211
  Transmission Date: 20090719
  Serious: Yes (Other)
  Sender: FDA-Public Use
  Company Number: US-PFIZER INC-2009168740

PATIENT
  Age: 15 Year
  Sex: Male

DRUGS (1)
  1. VFEND [Suspect]
     Dosage: 200 MBQ, 2X/DAY
     Route: 048

REACTIONS (2)
  - PHOTOSENSITIVITY REACTION [None]
  - PSEUDOPORPHYRIA [None]
